FAERS Safety Report 6264067-0 (Version None)
Quarter: 2009Q3

REPORT INFORMATION
  Report Type: 
  Country: None (occurrence: None)
  Receive Date: 20090710
  Receipt Date: 20090629
  Transmission Date: 20100115
  Serious: Yes (Other)
  Sender: FDA-Public Use
  Company Number: GB-JNJFOC-20090607893

PATIENT
  Sex: Female

DRUGS (1)
  1. TRAMACET [Suspect]
     Indication: BACK PAIN
     Dosage: INITIATED ON AN UNKNOWN DATE THREE WEEKS BEFORE THIS REPORT
     Route: 048

REACTIONS (9)
  - AGITATION [None]
  - ANXIETY [None]
  - ASTHENIA [None]
  - BURN INFECTION [None]
  - CONSCIOUSNESS FLUCTUATING [None]
  - DYSPNOEA [None]
  - HALLUCINATION [None]
  - SYNCOPE [None]
  - VOMITING [None]
